FAERS Safety Report 6478139-9 (Version None)
Quarter: 2009Q4

REPORT INFORMATION
  Report Type: 
  Country: None (occurrence: None)
  Receive Date: 20091207
  Receipt Date: 20091125
  Transmission Date: 20100525
  Serious: Yes (Other)
  Sender: FDA-Public Use
  Company Number: US-AMGEN-KDL375622

PATIENT
  Sex: Female

DRUGS (14)
  1. ARANESP [Suspect]
     Indication: RENAL FAILURE CHRONIC
     Route: 065
     Dates: start: 20090401
  2. EPOGEN [Suspect]
     Indication: RENAL FAILURE CHRONIC
     Route: 065
  3. BUPROPION HCL [Concomitant]
     Route: 048
  4. CALCIUM GLUCONATE [Concomitant]
     Route: 048
  5. VITAMIN D [Concomitant]
     Route: 048
  6. DOCUSATE [Concomitant]
     Route: 048
  7. LEVOTHYROXINE SODIUM [Concomitant]
     Route: 048
  8. REGLAN [Concomitant]
     Route: 048
  9. VITAMIN TAB [Concomitant]
     Route: 048
  10. ONDANSETRON [Concomitant]
     Route: 048
  11. CREON [Concomitant]
  12. PANTOPRAZOLE [Concomitant]
     Route: 048
  13. PREDNISONE [Concomitant]
     Route: 048
  14. TACROLIMUS [Concomitant]
     Route: 048

REACTIONS (12)
  - ANAEMIA [None]
  - BLOOD CREATININE INCREASED [None]
  - CHRONIC HEPATITIS [None]
  - COAGULOPATHY [None]
  - GLOMERULOSCLEROSIS [None]
  - HYPERTENSION [None]
  - KIDNEY FIBROSIS [None]
  - NEPHROSCLEROSIS [None]
  - OEDEMA [None]
  - RASH PRURITIC [None]
  - RENAL TUBULAR ATROPHY [None]
  - RENAL TUBULAR NECROSIS [None]
